FAERS Safety Report 9818111 (Version 1)
Quarter: 2014Q1

REPORT INFORMATION
  Report Type: Spontaneous
  Country: US (occurrence: None)
  Receive Date: 20140113
  Receipt Date: 20140113
  Transmission Date: 20141002
  Serious: Yes (Life-Threatening, Hospitalization)
  Sender: FDA-Public Use
  Company Number: None

PATIENT
  Age: 44 Year
  Sex: Female
  Weight: 82.56 kg

DRUGS (10)
  1. AZITHROMYCIN [Suspect]
     Indication: SINUSITIS
     Dosage: 2 TABLETS  QD  ORAL
     Route: 048
     Dates: start: 20131202
  2. AZITHROMYCIN [Suspect]
     Indication: BRONCHITIS
     Dosage: 2 TABLETS  QD  ORAL
     Route: 048
     Dates: start: 20131202
  3. ASPIRIN [Concomitant]
  4. CLOPIDOGREL BISULFATE [Concomitant]
  5. CODEINE /ACETAMINOPHEN [Concomitant]
  6. CYCLOBENZAPRINE HCL [Concomitant]
  7. HYDROCHLOROTHIAZIDE [Concomitant]
  8. IBUPROFEN [Concomitant]
  9. METOPROLOL SUCCINATE [Concomitant]
  10. AZITHROMYCIN [Concomitant]

REACTIONS (14)
  - Pruritus generalised [None]
  - Vomiting [None]
  - Syncope [None]
  - Ventricular fibrillation [None]
  - Tonic clonic movements [None]
  - Hypokalaemia [None]
  - Hypocalcaemia [None]
  - Metabolic acidosis [None]
  - Sinus tachycardia [None]
  - Troponin increased [None]
  - Diarrhoea [None]
  - Urinary tract infection [None]
  - Otitis media [None]
  - Drug hypersensitivity [None]
